FAERS Safety Report 8531190-7 (Version None)
Quarter: 2012Q3

REPORT INFORMATION
  Report Type: 
  Country: None (occurrence: None)
  Receive Date: 20120723
  Receipt Date: 20120709
  Transmission Date: 20120928
  Serious: Yes (Hospitalization, Other)
  Sender: FDA-Public Use
  Company Number: FR-ELI_LILLY_AND_COMPANY-FR201207002133

PATIENT
  Sex: Female

DRUGS (3)
  1. LOXAPINE HCL [Concomitant]
     Dosage: 25 MG, UNK
     Dates: start: 20101123, end: 20120413
  2. ZYPREXA [Suspect]
     Dosage: 15 MG, QD
     Route: 048
     Dates: end: 20120406
  3. DEPAKOTE [Concomitant]
     Dosage: 500 MG, UNK
     Dates: start: 20101213, end: 20120406

REACTIONS (3)
  - DELIRIUM [None]
  - AGRANULOCYTOSIS [None]
  - LEUKOPENIA [None]
